FAERS Safety Report 21110852 (Version 50)
Quarter: 2025Q2

REPORT INFORMATION
  Report Type: Report from Study
  Country: CO (occurrence: CO)
  Receive Date: 20220721
  Receipt Date: 20250627
  Transmission Date: 20250717
  Serious: Yes (Other)
  Sender: TAKEDA
  Company Number: CO-TAKEDA-CO202034046

PATIENT
  Age: 22 Year
  Sex: Female
  Weight: 51 kg

DRUGS (6)
  1. VELAGLUCERASE ALFA [Suspect]
     Active Substance: VELAGLUCERASE ALFA
     Indication: Gaucher^s disease
     Dosage: UNK UNK, Q2WEEKS
     Dates: start: 20160111
  2. VELAGLUCERASE ALFA [Suspect]
     Active Substance: VELAGLUCERASE ALFA
     Dosage: 3480 INTERNATIONAL UNIT, Q2WEEKS
     Dates: start: 20161001
  3. VELAGLUCERASE ALFA [Suspect]
     Active Substance: VELAGLUCERASE ALFA
     Dosage: 3480 INTERNATIONAL UNIT, Q2WEEKS
     Dates: start: 201712
  4. VELAGLUCERASE ALFA [Suspect]
     Active Substance: VELAGLUCERASE ALFA
     Dosage: UNK, UNK, Q2WEEKS
  5. VELAGLUCERASE ALFA [Suspect]
     Active Substance: VELAGLUCERASE ALFA
     Dosage: 3480 INTERNATIONAL UNIT, Q2WEEKS
  6. VELAGLUCERASE ALFA [Suspect]
     Active Substance: VELAGLUCERASE ALFA
     Dosage: 3780 INTERNATIONAL UNIT, Q2WEEKS

REACTIONS (22)
  - Foetal growth restriction [Unknown]
  - Menstruation irregular [Unknown]
  - Breast feeding [Unknown]
  - Weight decreased [Unknown]
  - Insurance issue [Unknown]
  - Cough [Not Recovered/Not Resolved]
  - Nasal congestion [Not Recovered/Not Resolved]
  - Weight increased [Unknown]
  - Pregnancy [Recovered/Resolved]
  - Anxiety [Not Recovered/Not Resolved]
  - Eye inflammation [Not Recovered/Not Resolved]
  - Stress [Not Recovered/Not Resolved]
  - Body height increased [Unknown]
  - Inappropriate schedule of product administration [Not Recovered/Not Resolved]
  - Incorrect dose administered [Unknown]
  - Product prescribing error [Unknown]
  - Product dose omission issue [Unknown]
  - Product use issue [Unknown]
  - Treatment noncompliance [Unknown]
  - Body height decreased [Unknown]
  - Pyrexia [Not Recovered/Not Resolved]
  - Headache [Not Recovered/Not Resolved]

NARRATIVE: CASE EVENT DATE: 20201012
